FAERS Safety Report 17191822 (Version 1)
Quarter: 2019Q4

REPORT INFORMATION
  Report Type: Report from Study
  Country: DE (occurrence: DE)
  Receive Date: 20191223
  Receipt Date: 20191223
  Transmission Date: 20200122
  Serious: Yes (Congenital Anomaly)
  Sender: FDA-Public Use
  Company Number: DE-TEVA-2019-DE-1156716

PATIENT
  Sex: Male

DRUGS (4)
  1. ETHACRIDINE [Suspect]
     Active Substance: ETHACRIDINE
     Dosage: DURING THE FIRST TRIMESTER
     Route: 064
  2. PARACETAMOL [Suspect]
     Active Substance: ACETAMINOPHEN
     Indication: PYREXIA
     Dosage: 500-1500 MG/DAY, BETWEEN GESTATIONAL WEEKS 33 AND 34
     Route: 064
  3. PROCAINE [Suspect]
     Active Substance: PROCAINE
     Dosage: DURING THE THIRD TRIMESTER
     Route: 064
  4. AMOXICILLIN. [Suspect]
     Active Substance: AMOXICILLIN
     Dosage: DURING THE THIRD TRIMESTER
     Route: 064

REACTIONS (2)
  - Foetal exposure during pregnancy [Unknown]
  - Patent ductus arteriosus [Recovered/Resolved]
